FAERS Safety Report 19179246 (Version 1)
Quarter: 2021Q2

REPORT INFORMATION
  Report Type: Spontaneous
  Country: US (occurrence: US)
  Receive Date: 20210423
  Receipt Date: 20210423
  Transmission Date: 20210717
  Serious: No
  Sender: FDA-Public Use
  Company Number: None

PATIENT
  Age: 71 Year
  Sex: Male
  Weight: 96.03 kg

DRUGS (4)
  1. LEVOTHYROXINE. [Concomitant]
     Active Substance: LEVOTHYROXINE
  2. CARBAMAZEPINE XR [Suspect]
     Active Substance: CARBAMAZEPINE
     Dates: start: 20201215
  3. TRIHEXYPHENIDYL [Concomitant]
     Active Substance: TRIHEXYPHENIDYL
  4. FAMOTIDINE. [Concomitant]
     Active Substance: FAMOTIDINE

REACTIONS (4)
  - Abdominal pain upper [None]
  - Chest pain [None]
  - Muscular weakness [None]
  - Abdominal discomfort [None]

NARRATIVE: CASE EVENT DATE: 20210105
